FAERS Safety Report 4776178-7 (Version None)
Quarter: 2005Q3

REPORT INFORMATION
  Report Type: 
  Country: None (occurrence: None)
  Receive Date: 20050914
  Receipt Date: 20041014
  Transmission Date: 20060218
  Serious: Yes (Other)
  Sender: FDA-Public Use
  Company Number: 163-20785-04100423

PATIENT
  Age: 78 Year
  Sex: Male

DRUGS (1)
  1. THALOMID [Suspect]
     Dosage: ORAL
     Route: 048
     Dates: end: 20041006

REACTIONS (1)
  - MYOCARDIAL INFARCTION [None]
